FAERS Safety Report 5910093-8 (Version None)
Quarter: 2008Q4

REPORT INFORMATION
  Report Type: 
  Country: None (occurrence: None)
  Receive Date: 20081007
  Receipt Date: 20070910
  Transmission Date: 20090506
  Serious: No
  Sender: FDA-Public Use
  Company Number: US-ASTRAZENECA-2007UW21338

PATIENT
  Age: 49 Year
  Sex: Female
  Weight: 79.4 kg

DRUGS (7)
  1. ARIMIDEX [Suspect]
     Indication: BREAST CANCER
     Route: 048
     Dates: start: 20070301, end: 20070630
  2. PROVENTIL [Concomitant]
  3. FLOVENT [Concomitant]
  4. NASONEX [Concomitant]
  5. ALLEGRA [Concomitant]
  6. ACIPHEX [Concomitant]
  7. FIORICET [Concomitant]

REACTIONS (5)
  - ABDOMINAL DISCOMFORT [None]
  - ARTHRALGIA [None]
  - HEADACHE [None]
  - MIGRAINE [None]
  - MYALGIA [None]
